FAERS Safety Report 8064607-5 (Version None)
Quarter: 2012Q1

REPORT INFORMATION
  Report Type: 
  Country: None (occurrence: None)
  Receive Date: 20120123
  Receipt Date: 20120119
  Transmission Date: 20120608
  Serious: Yes (Other)
  Sender: FDA-Public Use
  Company Number: US-MERCK-1201USA00530

PATIENT
  Age: 67 Year
  Sex: Female

DRUGS (1)
  1. FOSAMAX [Suspect]
     Indication: OSTEOPOROSIS
     Route: 048
     Dates: start: 20040101, end: 20120104

REACTIONS (6)
  - BLOOD COUNT ABNORMAL [None]
  - RENAL FAILURE [None]
  - BONE DENSITY DECREASED [None]
  - BACK PAIN [None]
  - TOOTH DISORDER [None]
  - ARTHRALGIA [None]
